FAERS Safety Report 16440202 (Version 1)
Quarter: 2019Q2

REPORT INFORMATION
  Report Type: Spontaneous
  Country: CN (occurrence: CN)
  Receive Date: 20190617
  Receipt Date: 20190617
  Transmission Date: 20190711
  Serious: Yes (Hospitalization)
  Sender: FDA-Public Use
  Company Number: CN-PFIZER INC-2019256242

PATIENT
  Age: 68 Year
  Sex: Male

DRUGS (2)
  1. CYTOSAR [Suspect]
     Active Substance: CYTARABINE
     Indication: NEOPLASM
     Dosage: 0.05 G, 1X/DAY
     Route: 041
     Dates: start: 20190410, end: 20190410
  2. OMACETAXINE MEPESUCCINATE [Suspect]
     Active Substance: OMACETAXINE MEPESUCCINATE
     Indication: NEOPLASM
     Dosage: 1 MG, 1X/DAY
     Route: 041
     Dates: start: 20190410, end: 20190410

REACTIONS (3)
  - Bone marrow failure [Recovering/Resolving]
  - Granulocyte count decreased [Recovering/Resolving]
  - Respiratory tract infection [Recovering/Resolving]

NARRATIVE: CASE EVENT DATE: 20190430
